FAERS Safety Report 7907461-1 (Version None)
Quarter: 2011Q4

REPORT INFORMATION
  Report Type: 
  Country: None (occurrence: None)
  Receive Date: 20111110
  Receipt Date: 20111104
  Transmission Date: 20120403
  Serious: Yes (Disabling)
  Sender: FDA-Public Use
  Company Number: GB-BAYER-2011-107385

PATIENT
  Sex: Male

DRUGS (1)
  1. CIPROFLAXACIN [Suspect]
     Dosage: UNK
     Dates: start: 20101201

REACTIONS (4)
  - QUALITY OF LIFE DECREASED [None]
  - IMPAIRED WORK ABILITY [None]
  - FIBROMYALGIA [None]
  - PAIN [None]
